FAERS Safety Report 13051173 (Version 1)
Quarter: 2016Q4

REPORT INFORMATION
  Report Type: Spontaneous
  Country: US (occurrence: US)
  Receive Date: 20161221
  Receipt Date: 20161221
  Transmission Date: 20170207
  Serious: No
  Sender: FDA-Public Use
  Company Number: US-NOVOPROD-472143

PATIENT
  Age: 70 Year
  Sex: Female

DRUGS (1)
  1. LEVEMIR [Suspect]
     Active Substance: INSULIN DETEMIR
     Indication: PRODUCT USED FOR UNKNOWN INDICATION
     Dosage: 48 U, QD AT BEDTIME
     Route: 058

REACTIONS (2)
  - Vomiting [Recovered/Resolved]
  - Dysgeusia [Recovered/Resolved]
